APPROVED DRUG PRODUCT: PSEUDOEPHEDRINE HYDROCHLORIDE
Active Ingredient: PSEUDOEPHEDRINE HYDROCHLORIDE
Strength: 120MG
Dosage Form/Route: TABLET, EXTENDED RELEASE;ORAL
Application: A209008 | Product #001
Applicant: AUROBINDO PHARMA LTD
Approved: Jun 9, 2017 | RLD: No | RS: No | Type: OTC